FAERS Safety Report 8135943-9 (Version None)
Quarter: 2012Q1

REPORT INFORMATION
  Report Type: 
  Country: None (occurrence: None)
  Receive Date: 20120214
  Receipt Date: 20120210
  Transmission Date: 20120608
  Serious: Yes (Hospitalization, Other)
  Sender: FDA-Public Use
  Company Number: US-PFIZER INC-2012038012

PATIENT

DRUGS (1)
  1. CHANTIX [Suspect]
     Dosage: UNK
     Dates: start: 20090101

REACTIONS (4)
  - MENTAL DISORDER [None]
  - SUICIDE ATTEMPT [None]
  - DEPRESSION [None]
  - HAEMORRHAGE [None]
